FAERS Safety Report 7488582-7 (Version None)
Quarter: 2011Q2

REPORT INFORMATION
  Report Type: 
  Country: None (occurrence: None)
  Receive Date: 20110518
  Receipt Date: 20100614
  Transmission Date: 20111010
  Serious: Yes (Hospitalization, Other)
  Sender: FDA-Public Use
  Company Number: DE-GENENTECH-318638

PATIENT
  Age: 72 Year
  Sex: Male

DRUGS (1)
  1. LUCENTIS [Suspect]
     Indication: MACULAR DEGENERATION
     Dosage: UNK
     Dates: start: 20100115

REACTIONS (4)
  - BRAIN NEOPLASM BENIGN [None]
  - BLADDER CANCER [None]
  - DISEASE PROGRESSION [None]
  - CARDIAC DISORDER [None]
